FAERS Safety Report 16957703 (Version 2)
Quarter: 2019Q4

REPORT INFORMATION
  Report Type: Spontaneous
  Country: CN (occurrence: CN)
  Receive Date: 20191024
  Receipt Date: 20191122
  Transmission Date: 20200122
  Serious: Yes (Disabling, Other)
  Sender: FDA-Public Use
  Company Number: NVSC2019CN013953

PATIENT
  Age: 39 Year
  Sex: Male

DRUGS (3)
  1. METHYLPREDNISOLONE. [Suspect]
     Active Substance: METHYLPREDNISOLONE
     Indication: INTERVERTEBRAL DISC PROTRUSION
  2. METHYLPREDNISOLONE. [Suspect]
     Active Substance: METHYLPREDNISOLONE
     Indication: MYELITIS
     Dosage: 1000 MG
     Route: 042
  3. SODIUM CHLORIDE. [Concomitant]
     Active Substance: SODIUM CHLORIDE
     Indication: MYELITIS
     Dosage: 500 ML OF 0.9% SOLN
     Route: 042

REACTIONS (3)
  - Condition aggravated [Unknown]
  - Paraplegia [Unknown]
  - Product use in unapproved indication [Unknown]
